FAERS Safety Report 22154302 (Version 5)
Quarter: 2023Q4

REPORT INFORMATION
  Report Type: Spontaneous
  Country: JP (occurrence: JP)
  Receive Date: 20230330
  Receipt Date: 20231116
  Transmission Date: 20240109
  Serious: Yes (Death, Hospitalization)
  Sender: FDA-Public Use
  Company Number: JP-ABBVIE-4709153

PATIENT
  Age: 82 Year
  Sex: Female
  Weight: 45 kg

DRUGS (6)
  1. SKYRIZI [Suspect]
     Active Substance: RISANKIZUMAB-RZAA
     Indication: Psoriasis
     Route: 058
     Dates: start: 20220418, end: 20220525
  2. CALCIUM CARBONATE [Concomitant]
     Active Substance: CALCIUM CARBONATE
     Indication: Gastritis
     Dosage: 2000 MILLIGRAM, PRECIPITATED
     Route: 048
  3. WARFARIN POTASSIUM [Concomitant]
     Active Substance: WARFARIN POTASSIUM
     Indication: Pulmonary thrombosis
     Dosage: 2.5 MILLIGRAM
     Route: 048
     Dates: start: 20220328
  4. URSODIOL [Concomitant]
     Active Substance: URSODIOL
     Indication: Hepatic function abnormal
     Dosage: 400 MILLIGRAM
     Route: 048
  5. DESLORATADINE [Concomitant]
     Active Substance: DESLORATADINE
     Indication: Psoriasis
     Dosage: 5 MILLIGRAM
     Route: 048
     Dates: start: 20220413
  6. DAPRODUSTAT [Concomitant]
     Active Substance: DAPRODUSTAT
     Indication: Nephrogenic anaemia
     Dosage: 4 MILLIGRAM
     Route: 048
     Dates: start: 20210916

REACTIONS (15)
  - Peritonitis [Fatal]
  - Herpes zoster [Unknown]
  - Decreased appetite [Unknown]
  - Device related sepsis [Fatal]
  - Gastric perforation [Fatal]
  - Gastric perforation [Fatal]
  - Electrolyte imbalance [Fatal]
  - Malaise [Unknown]
  - Hypotension [Unknown]
  - Abdominal pain [Unknown]
  - Dizziness [Unknown]
  - Dehydration [Fatal]
  - Blood pressure decreased [Unknown]
  - General physical health deterioration [Unknown]
  - Cardiovascular disorder [Unknown]

NARRATIVE: CASE EVENT DATE: 20220604
